FAERS Safety Report 11632824 (Version 1)
Quarter: 2015Q4

REPORT INFORMATION
  Report Type: Spontaneous
  Country: SE (occurrence: SE)
  Receive Date: 20151015
  Receipt Date: 20151015
  Transmission Date: 20160304
  Serious: Yes (Life-Threatening, Hospitalization, Disabling, Other)
  Sender: FDA-Public Use
  Company Number: SE-GLAXOSMITHKLINE-SE2015GSK025798

PATIENT
  Sex: Female

DRUGS (2)
  1. SERETIDE [Suspect]
     Active Substance: FLUTICASONE FUROATE\SALMETEROL XINAFOATE
     Indication: PRODUCT USED FOR UNKNOWN INDICATION
     Dosage: UNK
     Dates: start: 2011, end: 2013
  2. NEXIUM [Concomitant]
     Active Substance: ESOMEPRAZOLE MAGNESIUM
     Dosage: 40 MG, UNK
     Dates: start: 2010, end: 2013

REACTIONS (15)
  - Diarrhoea [Unknown]
  - Migraine [Unknown]
  - Abdominal pain upper [Unknown]
  - Nausea [Unknown]
  - Dyspnoea [Unknown]
  - Weight decreased [Unknown]
  - Adrenal insufficiency [Unknown]
  - Blood cortisol abnormal [Unknown]
  - Pain [Unknown]
  - Dyspepsia [Unknown]
  - Impaired work ability [Unknown]
  - Diarrhoea [Unknown]
  - Condition aggravated [Unknown]
  - Eye pain [Unknown]
  - Fatigue [Unknown]

NARRATIVE: CASE EVENT DATE: 2012
